FAERS Safety Report 6148816-8 (Version None)
Quarter: 2009Q2

REPORT INFORMATION
  Report Type: 
  Country: None (occurrence: None)
  Receive Date: 20090406
  Receipt Date: 20090325
  Transmission Date: 20091009
  Serious: Yes (Other)
  Sender: FDA-Public Use
  Company Number: 231878

PATIENT
  Age: 45 Year
  Sex: Male
  Weight: 80 kg

DRUGS (7)
  1. PHENYTOIN [Suspect]
  2. LIPITOR [Suspect]
     Dosage: 10 MG, ONCE DAILY, ORAL
     Route: 048
     Dates: start: 20060301, end: 20060301
  3. ASPIRIN [Concomitant]
  4. (CLOBAZAM) [Concomitant]
  5. CLOPIDOGREL [Concomitant]
  6. SENNA-MINT WAF [Concomitant]
  7. TEGRETOL [Concomitant]

REACTIONS (3)
  - CONDITION AGGRAVATED [None]
  - DRUG INTERACTION [None]
  - PETIT MAL EPILEPSY [None]
